FAERS Safety Report 14159807 (Version 1)
Quarter: 2017Q4

REPORT INFORMATION
  Report Type: Spontaneous
  Country: US (occurrence: US)
  Receive Date: 20171103
  Receipt Date: 20171103
  Transmission Date: 20180321
  Serious: No
  Sender: FDA-Public Use
  Company Number: US-ACTELION-A-US2017-161955

PATIENT
  Age: 63 Year
  Sex: Male

DRUGS (1)
  1. VALCHLOR [Suspect]
     Active Substance: MECHLORETHAMINE
     Indication: MYCOSIS FUNGOIDES
     Dosage: THIN FILM TO AFFECTED SKIN, THREE TIMES WEEKLY
     Route: 061

REACTIONS (1)
  - Peripheral swelling [Not Recovered/Not Resolved]
